FAERS Safety Report 4851224-0 (Version None)
Quarter: 2005Q4

REPORT INFORMATION
  Report Type: 
  Country: None (occurrence: None)
  Receive Date: 20051212
  Receipt Date: 20051201
  Transmission Date: 20060501
  Serious: Yes (Other)
  Sender: FDA-Public Use
  Company Number: US-JNJFOC-20051200939

PATIENT
  Sex: Female
  Weight: 63.5 kg

DRUGS (14)
  1. INFLIXIMAB [Suspect]
     Indication: RHEUMATOID ARTHRITIS
     Route: 042
  2. CALCIUM GLUCONATE [Concomitant]
  3. METHOTREXATE [Concomitant]
  4. FOSAMAX [Concomitant]
  5. GLUCOSAMINE/CHONDROITIN [Concomitant]
  6. GLUCOSAMINE/CHONDROITIN [Concomitant]
  7. GLUCOSAMINE/CHONDROITIN [Concomitant]
  8. GLUCOSAMINE/CHONDROITIN [Concomitant]
  9. ASPIRIN [Concomitant]
  10. ZOCOR [Concomitant]
  11. ATENOLOL [Concomitant]
  12. LEVOTHYROXINE SODIUM [Concomitant]
  13. ALTACE [Concomitant]
  14. PAROXETINE HCL [Concomitant]

REACTIONS (1)
  - BASAL CELL CARCINOMA [None]
